FAERS Safety Report 24804868 (Version 1)
Quarter: 2025Q1

REPORT INFORMATION
  Report Type: Spontaneous
  Country: FR (occurrence: FR)
  Receive Date: 20250103
  Receipt Date: 20250103
  Transmission Date: 20250409
  Serious: Yes (Hospitalization)
  Sender: UCB
  Company Number: None

PATIENT
  Age: 56 Year
  Sex: Male
  Weight: 78.5 kg

DRUGS (9)
  1. KEPPRA [Suspect]
     Active Substance: LEVETIRACETAM
     Indication: Tonic clonic movements
     Route: 048
     Dates: start: 20240901, end: 20241011
  2. KEPPRA [Suspect]
     Active Substance: LEVETIRACETAM
     Route: 048
     Dates: start: 20241011, end: 20241021
  3. FLAGYL [Concomitant]
     Active Substance: METRONIDAZOLE\METRONIDAZOLE HYDROCHLORIDE
     Indication: Antibiotic therapy
     Dosage: 500 MG X 3/DAY
     Route: 048
     Dates: start: 20240905, end: 20241003
  4. CLAFORAN [Concomitant]
     Active Substance: CEFOTAXIME SODIUM
     Indication: Antibiotic therapy
     Dosage: 200 MG/KG/DAY
     Route: 042
     Dates: start: 20240905, end: 20240910
  5. CEFTRIAXONE [Concomitant]
     Active Substance: CEFTRIAXONE
     Indication: Antibiotic therapy
     Dosage: 3G X 2/DAY
     Route: 042
     Dates: start: 20240910, end: 20241008
  6. CEFTRIAXONE [Concomitant]
     Active Substance: CEFTRIAXONE
     Dosage: 2G X 2/DAY
     Route: 042
     Dates: start: 20241008, end: 20241011
  7. LEVOFLOXACIN [Concomitant]
     Active Substance: LEVOFLOXACIN
     Indication: Antibiotic therapy
     Dosage: 500 MG X2/DAY
     Route: 048
     Dates: start: 20241011
  8. LINEZOLID [Concomitant]
     Active Substance: LINEZOLID
     Indication: Antibiotic therapy
     Dosage: 600 MG X 2/DAY
     Route: 048
     Dates: start: 20241011
  9. ELIQUIS [Concomitant]
     Active Substance: APIXABAN
     Indication: Venous thrombosis
     Dosage: 1 TABLET IN THE MORNING AND EVENING
     Route: 048
     Dates: start: 20240912

REACTIONS (1)
  - Neutropenia [Recovered/Resolved]

NARRATIVE: CASE EVENT DATE: 20241008
